FAERS Safety Report 8050431-6 (Version None)
Quarter: 2012Q1

REPORT INFORMATION
  Report Type: 
  Country: None (occurrence: None)
  Receive Date: 20120117
  Receipt Date: 20120113
  Transmission Date: 20120608
  Serious: Yes (Hospitalization, Disabling)
  Sender: FDA-Public Use
  Company Number: IT-ALLERGAN-1116141US

PATIENT
  Age: 39 Year
  Sex: Female

DRUGS (4)
  1. BOTULINUM TOXIN TYPE A [Suspect]
     Indication: AUTONOMIC NERVOUS SYSTEM IMBALANCE
     Dosage: 250 UNITS, SINGLE
     Route: 030
     Dates: start: 20080131, end: 20080131
  2. BOTULINUM TOXIN TYPE A [Suspect]
     Dosage: UNK
     Route: 030
     Dates: start: 20090801, end: 20090801
  3. BOTULINUM TOXIN TYPE A [Suspect]
     Dosage: 250 UNK, SINGLE
     Route: 030
     Dates: start: 20091201, end: 20091201
  4. BOTULINUM TOXIN TYPE A [Suspect]
     Indication: HYPERHIDROSIS
     Dosage: UNK
     Route: 030
     Dates: start: 20081201, end: 20081201

REACTIONS (5)
  - GASTRITIS [None]
  - CACHEXIA [None]
  - WEIGHT DECREASED [None]
  - DECREASED APPETITE [None]
  - DYSPEPSIA [None]
